FAERS Safety Report 5852383-3 (Version None)
Quarter: 2008Q3

REPORT INFORMATION
  Report Type: 
  Country: None (occurrence: None)
  Receive Date: 20080820
  Receipt Date: 20080820
  Transmission Date: 20090109
  Serious: Yes (Hospitalization)
  Sender: FDA-Public Use
  Company Number: None

PATIENT
  Age: 78 Year
  Sex: Male
  Weight: 97 kg

DRUGS (1)
  1. METOPROLOL TARTRATE [Suspect]
     Dosage: 50 MG EVERY DAY PO
     Route: 048
     Dates: start: 20060919, end: 20080808

REACTIONS (9)
  - ASTHENIA [None]
  - BRADYCARDIA [None]
  - BRUXISM [None]
  - EYE ROLLING [None]
  - FEELING ABNORMAL [None]
  - HIATUS HERNIA [None]
  - LOSS OF CONSCIOUSNESS [None]
  - MOVEMENT DISORDER [None]
  - SYNCOPE [None]
